FAERS Safety Report 8350054-5 (Version None)
Quarter: 2012Q2

REPORT INFORMATION
  Report Type: 
  Country: None (occurrence: None)
  Receive Date: 20120510
  Receipt Date: 20120501
  Transmission Date: 20120825
  Serious: Yes (Hospitalization)
  Sender: FDA-Public Use
  Company Number: US-ACTELION-A-NJ2011-45093

PATIENT

DRUGS (5)
  1. EPOPROSTENOL SODIUM [Suspect]
     Indication: PULMONARY ARTERIAL HYPERTENSION
     Dosage: 16 NG/KG, PER MIN
     Route: 041
     Dates: start: 20110131
  2. EPOPROSTENOL SODIUM [Suspect]
     Dosage: 14 NG/KG, PER MIN
     Route: 041
     Dates: start: 20101214, end: 20110130
  3. ASPIRIN [Concomitant]
  4. TRACLEER [Concomitant]
     Indication: PULMONARY ARTERIAL HYPERTENSION
     Dosage: UNK
     Route: 048
     Dates: start: 20100429
  5. SILDENAFIL [Concomitant]

REACTIONS (14)
  - HEADACHE [None]
  - ABDOMINAL PAIN [None]
  - CHILLS [None]
  - FUNCTIONAL GASTROINTESTINAL DISORDER [None]
  - FLUID RETENTION [None]
  - PNEUMONIA [None]
  - DIARRHOEA [None]
  - BLOOD POTASSIUM DECREASED [None]
  - VOMITING [None]
  - TREMOR [None]
  - SKIN DISORDER [None]
  - DYSPNOEA [None]
  - NAUSEA [None]
  - DIZZINESS [None]
